FAERS Safety Report 8480134-5 (Version None)
Quarter: 2012Q2

REPORT INFORMATION
  Report Type: 
  Country: None (occurrence: None)
  Receive Date: 20120629
  Receipt Date: 20120620
  Transmission Date: 20120825
  Serious: Yes (Other)
  Sender: FDA-Public Use
  Company Number: CA-ROCHE-1060160

PATIENT
  Sex: Male

DRUGS (2)
  1. OMALIZUMAB [Suspect]
     Indication: BRONCHOPULMONARY ASPERGILLOSIS ALLERGIC
  2. OMALIZUMAB [Suspect]
     Indication: ASTHMA
     Route: 058
     Dates: start: 20100826

REACTIONS (10)
  - ROAD TRAFFIC ACCIDENT [None]
  - NASOPHARYNGITIS [None]
  - RASH [None]
  - PRURITUS [None]
  - HEART RATE INCREASED [None]
  - NECK PAIN [None]
  - BACK PAIN [None]
  - LIMB DISCOMFORT [None]
  - LOWER RESPIRATORY TRACT INFECTION [None]
  - HAEMORRHAGE [None]
